FAERS Safety Report 7817500-4 (Version None)
Quarter: 2011Q4

REPORT INFORMATION
  Report Type: 
  Country: None (occurrence: None)
  Receive Date: 20111017
  Receipt Date: 20111003
  Transmission Date: 20120403
  Serious: Yes (Hospitalization)
  Sender: FDA-Public Use
  Company Number: FR-ROCHE-776177

PATIENT
  Sex: Male

DRUGS (2)
  1. MYCOPHENOLATE MOFETIL (CELLCEPT) [Suspect]
     Indication: PRODUCT USED FOR UNKNOWN INDICATION
     Route: 048
     Dates: start: 20070101, end: 20100501
  2. MABTHERA [Suspect]
     Indication: DERMATOMYOSITIS
     Route: 042
     Dates: start: 20100517, end: 20100615

REACTIONS (7)
  - RESPIRATORY DISORDER [None]
  - HEART RATE INCREASED [None]
  - VENTRICULAR EXTRASYSTOLES [None]
  - LEFT VENTRICULAR FAILURE [None]
  - TOXICITY TO VARIOUS AGENTS [None]
  - VENTRICULAR HYPOKINESIA [None]
  - CONGESTIVE CARDIOMYOPATHY [None]
